FAERS Safety Report 10404454 (Version 1)
Quarter: 2014Q2

REPORT INFORMATION
  Report Type: Spontaneous
  Country: US (occurrence: None)
  Receive Date: 20140425
  Receipt Date: 20140425
  Transmission Date: 20141212
  Serious: No
  Sender: FDA-Public Use
  Company Number: 1190109

PATIENT
  Age: 41 Year
  Sex: Male

DRUGS (1)
  1. ZELBORAF (VEMURAFENIB) [Suspect]
     Indication: MALIGNANT MELANOMA
     Dosage: 960 UNIT NOT REPORTED (480 UNIT NOT REPORTED)
     Route: 048
     Dates: end: 20131104

REACTIONS (2)
  - Dermatitis acneiform [None]
  - Hyperkeratosis [None]
